FAERS Safety Report 20432594 (Version 1)
Quarter: 2022Q1

REPORT INFORMATION
  Report Type: Spontaneous
  Country: US (occurrence: US)
  Receive Date: 20220204
  Receipt Date: 20220204
  Transmission Date: 20220424
  Serious: Yes (Hospitalization)
  Sender: FDA-Public Use
  Company Number: US-CELGENE-USA-20220200462

PATIENT
  Age: 74 Year
  Sex: Male

DRUGS (2)
  1. THALOMID [Suspect]
     Active Substance: THALIDOMIDE
     Indication: Plasma cell myeloma
     Dosage: 200 MILLIGRAM
     Route: 048
     Dates: start: 200708
  2. THALOMID [Suspect]
     Active Substance: THALIDOMIDE
     Dosage: 100 MILLIGRAM
     Route: 048
     Dates: start: 200907

REACTIONS (1)
  - Pneumonia [Unknown]

NARRATIVE: CASE EVENT DATE: 20211201
